FAERS Safety Report 8502571-2 (Version None)
Quarter: 2012Q3

REPORT INFORMATION
  Report Type: 
  Country: None (occurrence: None)
  Receive Date: 20120702
  Receipt Date: 20120620
  Transmission Date: 20120928
  Serious: Yes (Hospitalization)
  Sender: FDA-Public Use
  Company Number: 1206-329

PATIENT
  Sex: Male

DRUGS (1)
  1. EYLEA [Suspect]

REACTIONS (1)
  - INFLAMMATION [None]
